FAERS Safety Report 8573149-X (Version None)
Quarter: 2012Q3

REPORT INFORMATION
  Report Type: 
  Country: None (occurrence: None)
  Receive Date: 20120806
  Receipt Date: 20120730
  Transmission Date: 20120928
  Serious: No
  Sender: FDA-Public Use
  Company Number: US-B.I. PHARMACEUTICALS,INC./RIDGEFIELD-2012-BP-14622BP

PATIENT
  Sex: Female

DRUGS (10)
  1. PROAIR HFA [Concomitant]
     Indication: ASTHMA
  2. SINGULAIR [Concomitant]
     Indication: ASTHMA
     Dosage: 10 MG
     Route: 048
  3. LORAZEPAM [Concomitant]
     Indication: FEELING OF RELAXATION
     Route: 048
  4. SPIRIVA [Suspect]
     Indication: CHRONIC OBSTRUCTIVE PULMONARY DISEASE
     Route: 048
  5. DULERA INHALER [Concomitant]
     Indication: ASTHMA
     Dosage: 4 PUF
     Route: 055
     Dates: start: 20120102
  6. XOLAIR [Concomitant]
     Indication: ASTHMA
     Route: 058
  7. SPIRIVA [Suspect]
     Indication: ASTHMA
     Dosage: 18 MCG
     Route: 055
     Dates: start: 20120529
  8. AMBIEN [Concomitant]
     Indication: SLEEP DISORDER
     Dosage: 10 MG
     Route: 048
  9. MAXALT [Concomitant]
     Indication: MIGRAINE
     Route: 048
  10. XOPENEX [Concomitant]
     Indication: ASTHMA
     Route: 055

REACTIONS (2)
  - COCCIDIOIDOMYCOSIS [None]
  - INCORRECT ROUTE OF DRUG ADMINISTRATION [None]
